FAERS Safety Report 25269117 (Version 3)
Quarter: 2025Q3

REPORT INFORMATION
  Report Type: Spontaneous
  Country: BR (occurrence: BR)
  Receive Date: 20250505
  Receipt Date: 20250803
  Transmission Date: 20251021
  Serious: Yes (Life-Threatening, Hospitalization, Other)
  Sender: ALEXION PHARMACEUTICALS
  Company Number: BR-AstraZeneca-CH-00857788A

PATIENT
  Age: 32 Year
  Sex: Female
  Weight: 74 kg

DRUGS (1)
  1. ULTOMIRIS [Suspect]
     Active Substance: RAVULIZUMAB-CWVZ

REACTIONS (11)
  - Paroxysmal nocturnal haemoglobinuria [Recovering/Resolving]
  - Retroperitoneal haematoma [Unknown]
  - Haemolysis [Unknown]
  - Thrombosis [Unknown]
  - Haptoglobin decreased [Unknown]
  - Coagulopathy [Unknown]
  - Blood lactate dehydrogenase increased [Recovering/Resolving]
  - Haematuria [Unknown]
  - Haemoglobin decreased [Unknown]
  - Platelet count decreased [Unknown]
  - Inappropriate schedule of product administration [Recovered/Resolved]

NARRATIVE: CASE EVENT DATE: 20250201
